FAERS Safety Report 8353130-6 (Version None)
Quarter: 2012Q2

REPORT INFORMATION
  Report Type: 
  Country: None (occurrence: None)
  Receive Date: 20120511
  Receipt Date: 20120502
  Transmission Date: 20120825
  Serious: Yes (Other)
  Sender: FDA-Public Use
  Company Number: AR-AMGEN-ARGSP2011019768

PATIENT
  Sex: Female
  Weight: 61 kg

DRUGS (2)
  1. ENBREL [Suspect]
     Indication: RHEUMATOID ARTHRITIS
     Dosage: 50 MG, WEEKLY
     Route: 058
     Dates: start: 20091215
  2. PREDNISONE [Suspect]
     Indication: GLAUCOMA
     Dosage: UNK

REACTIONS (1)
  - BLINDNESS [None]
